FAERS Safety Report 14114537 (Version 1)
Quarter: 2017Q4

REPORT INFORMATION
  Report Type: Spontaneous
  Country: US (occurrence: US)
  Receive Date: 20171023
  Receipt Date: 20171023
  Transmission Date: 20180321
  Serious: Yes (Other)
  Sender: FDA-Public Use
  Company Number: None

PATIENT
  Age: 66 Year
  Sex: Female
  Weight: 77.85 kg

DRUGS (26)
  1. CLOPIDOGREL [Concomitant]
     Active Substance: CLOPIDOGREL BISULFATE
  2. DOXYCYCLINE. [Concomitant]
     Active Substance: DOXYCYCLINE
  3. SIMVASTIN [Concomitant]
     Active Substance: SIMVASTATIN
  4. ROPINROLE HYDROCHLORIDE [Concomitant]
     Active Substance: ROPINIROLE HYDROCHLORIDE
  5. MULTI VITAMIN [Concomitant]
     Active Substance: VITAMINS
  6. ALBUTEROL. [Concomitant]
     Active Substance: ALBUTEROL
  7. FOLIC ACID. [Concomitant]
     Active Substance: FOLIC ACID
  8. VITAMIN D3 [Concomitant]
     Active Substance: CHOLECALCIFEROL
  9. PAROXETINE. [Concomitant]
     Active Substance: PAROXETINE
  10. FLUICASONE [Concomitant]
  11. EQUATE ALLERGY RELIEF (CETIRIZINE HYDROCHLORIDE) [Concomitant]
     Active Substance: CETIRIZINE HYDROCHLORIDE
  12. GLOCOPYRROLATE [Concomitant]
  13. FIBER [Concomitant]
     Active Substance: PSYLLIUM HUSK
  14. FLEETE ENEMA [Concomitant]
  15. METTOPROL [Concomitant]
  16. LIDOCAINE. [Concomitant]
     Active Substance: LIDOCAINE
  17. STOOL SOFTENER (DOCUSATE SODIUM) [Concomitant]
     Active Substance: DOCUSATE SODIUM
  18. GLYCERIN SUPPOSITORIES [Concomitant]
  19. VENLAFAXINE [Concomitant]
     Active Substance: VENLAFAXINE HYDROCHLORIDE
  20. PANTOPRAZOLE [Concomitant]
     Active Substance: PANTOPRAZOLE
  21. MIRALAX [Concomitant]
     Active Substance: POLYETHYLENE GLYCOL 3350
  22. BISACODYL. [Concomitant]
     Active Substance: BISACODYL
  23. RECLAST [Suspect]
     Active Substance: ZOLEDRONIC ACID
     Indication: OSTEOPENIA
     Dosage: ?          OTHER FREQUENCY:ONCE YEARLY;?
     Route: 042
     Dates: start: 20101201, end: 20140601
  24. LEFLUNOMIDE. [Concomitant]
     Active Substance: LEFLUNOMIDE
  25. QUETIAPINE. [Concomitant]
     Active Substance: QUETIAPINE
  26. METHOTREXATE. [Concomitant]
     Active Substance: METHOTREXATE

REACTIONS (2)
  - Osteonecrosis of jaw [None]
  - Depression [None]

NARRATIVE: CASE EVENT DATE: 20170621
